FAERS Safety Report 5273144-2 (Version None)
Quarter: 2007Q1

REPORT INFORMATION
  Report Type: 
  Country: None (occurrence: None)
  Receive Date: 20070322
  Receipt Date: 20070313
  Transmission Date: 20070707
  Serious: Yes (Other)
  Sender: FDA-Public Use
  Company Number: JP-PFIZER INC-2007019483

PATIENT
  Sex: Female

DRUGS (7)
  1. ZOLOFT [Suspect]
     Dosage: DAILY DOSE:100MG
     Route: 048
  2. MESALAZINE [Concomitant]
  3. LAC B [Concomitant]
     Route: 048
  4. MUCOSTA [Concomitant]
     Route: 048
  5. SULFASALAZINE [Concomitant]
  6. RINDERON [Concomitant]
  7. MIRADOL [Concomitant]
     Route: 048

REACTIONS (2)
  - COLITIS ULCERATIVE [None]
  - MELAENA [None]
